FAERS Safety Report 8797280 (Version 2)
Quarter: 2012Q4

REPORT INFORMATION
  Report Type: 
  Country: US (occurrence: US)
  Receive Date: 20120919
  Receipt Date: 20121126
  Transmission Date: 20130627
  Serious: Yes (Hospitalization)
  Sender: FDA-Public Use
  Company Number: US-ACTELION-A-US2012-63456

PATIENT
  Age: 76 Year
  Sex: Female

DRUGS (3)
  1. TRACLEER [Suspect]
     Indication: PULMONARY ARTERIAL HYPERTENSION
     Dosage: UNK
     Route: 048
  2. REVATIO [Concomitant]
  3. ASPIRIN [Concomitant]

REACTIONS (7)
  - Knee operation [Unknown]
  - Knee arthroplasty [Recovering/Resolving]
  - Visual impairment [Unknown]
  - Arthritis [Unknown]
  - Abdominal distension [Unknown]
  - Lacrimation increased [Unknown]
  - Joint swelling [Unknown]
